FAERS Safety Report 10659361 (Version 1)
Quarter: 2014Q4

REPORT INFORMATION
  Report Type: Spontaneous
  Country: US (occurrence: None)
  Receive Date: 20141205
  Receipt Date: 20141205
  Transmission Date: 20150529
  Serious: Yes (Other)
  Sender: FDA-Public Use
  Company Number: 163-POMAL-14092859

PATIENT
  Age: 57 Year
  Sex: Male

DRUGS (6)
  1. POMALYST [Suspect]
     Active Substance: POMALIDOMIDE
     Indication: PLASMA CELL MYELOMA
     Dosage: 21 IN 21 D?TEMPORARY INTERRAUPTED
     Route: 048
     Dates: start: 20140122
  2. LISINOPRIL (LISINOPRIL) [Concomitant]
     Active Substance: LISINOPRIL
  3. TYLENOL [Concomitant]
     Active Substance: ACETAMINOPHEN
  4. COUMADIN [Concomitant]
     Active Substance: WARFARIN SODIUM
  5. CARDIZEM CD (DILTIAZEM HYDROCHLORIDE) [Concomitant]
  6. BISPHOSPHONATE [Concomitant]
     Active Substance: UNSPECIFIED INGREDIENT

REACTIONS (1)
  - Anaemia [None]

NARRATIVE: CASE EVENT DATE: 2014
